FAERS Safety Report 8575207-2 (Version None)
Quarter: 2012Q3

REPORT INFORMATION
  Report Type: 
  Country: None (occurrence: None)
  Receive Date: 20120807
  Receipt Date: 20120725
  Transmission Date: 20120928
  Serious: Yes (Other)
  Sender: FDA-Public Use
  Company Number: TR-JNJFOC-20120715034

PATIENT
  Age: 15 Year
  Sex: Female

DRUGS (5)
  1. TOPIRAMATE [Suspect]
     Route: 048
  2. PHENYTOIN [Suspect]
     Indication: CONVULSION
     Route: 065
  3. LEVETIRACETAM [Suspect]
     Indication: EPILEPSY
     Route: 065
  4. TOPIRAMATE [Suspect]
     Indication: EPILEPSY
     Route: 048
  5. LEVETIRACETAM [Suspect]
     Route: 065

REACTIONS (3)
  - DRUG INEFFECTIVE [None]
  - ASTROCYTOMA, LOW GRADE [None]
  - BRAIN NEOPLASM [None]
